FAERS Safety Report 6956016-4 (Version None)
Quarter: 2010Q3

REPORT INFORMATION
  Report Type: 
  Country: None (occurrence: None)
  Receive Date: 20100826
  Receipt Date: 20100817
  Transmission Date: 20110219
  Serious: Yes (Death, Hospitalization)
  Sender: FDA-Public Use
  Company Number: 536928

PATIENT
  Age: 60 Year
  Sex: Female

DRUGS (9)
  1. OXALIPLATIN [Suspect]
     Indication: COLORECTAL CANCER
     Dosage: INTRAVENOUS DRIP
     Route: 041
     Dates: start: 20090821, end: 20090821
  2. OXALIPLATIN [Suspect]
     Indication: COLORECTAL CANCER
     Dosage: INTRAVENOUS DRIP
     Route: 041
     Dates: start: 20091016, end: 20091016
  3. CAPECITABINE [Suspect]
     Indication: COLORECTAL CANCER
     Dosage: ORAL
     Route: 048
     Dates: start: 20090821
  4. CAPECITABINE [Suspect]
     Indication: COLORECTAL CANCER
     Dosage: ORAL
     Route: 048
     Dates: start: 20091016
  5. (ADCAL, D3 ) [Concomitant]
  6. AMLODIPINE [Concomitant]
  7. (ASPIRIN /0000270)/) [Concomitant]
  8. SIMVASTATIN [Concomitant]
  9. AMOXICILLIN [Concomitant]

REACTIONS (12)
  - ABDOMINAL PAIN [None]
  - COLORECTAL CANCER [None]
  - FEMORAL ARTERY EMBOLISM [None]
  - GENERAL PHYSICAL HEALTH DETERIORATION [None]
  - LYMPHADENOPATHY [None]
  - MALIGNANT NEOPLASM PROGRESSION [None]
  - MYOCARDIAL ISCHAEMIA [None]
  - PERIPHERAL ISCHAEMIA [None]
  - PULMONARY EMBOLISM [None]
  - RESPIRATORY ALKALOSIS [None]
  - SINUS TACHYCARDIA [None]
  - UROSEPSIS [None]
